FAERS Safety Report 22085492 (Version 1)
Quarter: 2023Q1

REPORT INFORMATION
  Report Type: Spontaneous
  Country: US (occurrence: US)
  Receive Date: 20230310
  Receipt Date: 20230310
  Transmission Date: 20230417
  Serious: No
  Sender: FDA-Public Use
  Company Number: US-JNJFOC-20230301867

PATIENT
  Sex: Male

DRUGS (1)
  1. PEPCID AC [Suspect]
     Active Substance: FAMOTIDINE
     Indication: Dyspepsia
     Dosage: DOSE: 1-3 TABLETS ONCE DAILY
     Route: 065
     Dates: start: 202302

REACTIONS (1)
  - Overdose [Unknown]

NARRATIVE: CASE EVENT DATE: 20230201
